FAERS Safety Report 20451231 (Version 1)
Quarter: 2022Q1

REPORT INFORMATION
  Report Type: Spontaneous
  Country: US (occurrence: US)
  Receive Date: 20220209
  Receipt Date: 20220209
  Transmission Date: 20220423
  Serious: Yes (Death)
  Sender: FDA-Public Use
  Company Number: US-PERRIGO-22US001830

PATIENT
  Age: 40 Year
  Sex: Male

DRUGS (4)
  1. MORPHINE SULFATE [Suspect]
     Active Substance: MORPHINE SULFATE
     Indication: Drug abuse
     Dosage: UNKNOWN, UNKNOWN
     Route: 055
  2. FENTANYL [Suspect]
     Active Substance: FENTANYL
     Indication: Drug abuse
     Dosage: UNKNOWN, UNKNOWN
     Route: 055
  3. METHADONE [Suspect]
     Active Substance: METHADONE HYDROCHLORIDE
     Indication: Drug abuse
     Dosage: UNKNOWN, UNKNOWN
     Route: 055
  4. ETIZOLAM [Suspect]
     Active Substance: ETIZOLAM
     Indication: Drug abuse
     Dosage: UNKNOWN, UNKNOWN
     Route: 055

REACTIONS (1)
  - Exposure to toxic agent [Fatal]

NARRATIVE: CASE EVENT DATE: 20200101
